FAERS Safety Report 8215235-X (Version None)
Quarter: 2012Q1

REPORT INFORMATION
  Report Type: 
  Country: None (occurrence: None)
  Receive Date: 20120316
  Receipt Date: 20120313
  Transmission Date: 20120608
  Serious: Yes (Other)
  Sender: FDA-Public Use
  Company Number: US-PFIZER INC-2012067234

PATIENT
  Sex: Female
  Weight: 70.748 kg

DRUGS (4)
  1. SYNTHROID [Concomitant]
     Indication: HYPOTHYROIDISM
     Dosage: 125 UG, DAILY
  2. LYRICA [Suspect]
     Dosage: 50 MG, 2X/DAY
     Route: 048
  3. LYRICA [Suspect]
     Indication: FIBROMYALGIA
     Dosage: 50 MG, 3X/DAY
     Route: 048
     Dates: start: 20070101
  4. VICODIN [Concomitant]
     Indication: OSTEOARTHRITIS
     Dosage: 75 MG, 2X/DAY

REACTIONS (2)
  - INFLAMMATION [None]
  - OEDEMA PERIPHERAL [None]
